FAERS Safety Report 6097155-2 (Version None)
Quarter: 2009Q1

REPORT INFORMATION
  Report Type: 
  Country: None (occurrence: None)
  Receive Date: 20090226
  Receipt Date: 20090226
  Transmission Date: 20090719
  Serious: Yes (Other)
  Sender: FDA-Public Use
  Company Number: None

PATIENT
  Sex: Male
  Weight: 48.5349 kg

DRUGS (2)
  1. SINGULAIR [Suspect]
     Indication: ASTHMA
     Dosage: 5 MG ONCE NIGHTLY PO
     Route: 048
     Dates: start: 20060601, end: 20090224
  2. SINGULAIR [Suspect]
     Indication: MULTIPLE ALLERGIES
     Dosage: 5 MG ONCE NIGHTLY PO
     Route: 048
     Dates: start: 20060601, end: 20090224

REACTIONS (1)
  - GASTROENTERITIS [None]
